FAERS Safety Report 9959170 (Version 1)
Quarter: 2014Q1

REPORT INFORMATION
  Report Type: Report from Study
  Country: US (occurrence: US)
  Receive Date: 20140305
  Receipt Date: 20140305
  Transmission Date: 20141002
  Serious: No
  Sender: FDA-Public Use
  Company Number: US-ABBVIE-13P-163-1102274-00

PATIENT
  Age: 60 Year
  Sex: Female

DRUGS (9)
  1. HUMIRA [Suspect]
     Indication: CROHN^S DISEASE
     Dates: start: 20121117
  2. FOSAMAX [Concomitant]
     Indication: OSTEOPOROSIS
     Route: 048
  3. CELEXA [Concomitant]
     Indication: DEPRESSION
     Route: 048
  4. VITAMIN B12 [Concomitant]
     Indication: HYPOVITAMINOSIS
     Dosage: 1000 MCG BY MOUTH DAILY
     Route: 048
  5. VITAMIN B12 [Concomitant]
     Indication: CROHN^S DISEASE
  6. CALCIUM + VITAMIN D [Concomitant]
     Indication: OSTEOPOROSIS
     Route: 048
  7. MULTIVITAMIN [Concomitant]
     Indication: VITAMIN SUPPLEMENTATION
     Dosage: DAILY
     Route: 048
  8. QUESTRAN [Concomitant]
     Indication: CROHN^S DISEASE
     Dosage: ONE TO TWO TIME DAILY
  9. QUESTRAN [Concomitant]
     Indication: DIARRHOEA

REACTIONS (5)
  - Local swelling [Not Recovered/Not Resolved]
  - Headache [Not Recovered/Not Resolved]
  - Dizziness [Not Recovered/Not Resolved]
  - Neck pain [Not Recovered/Not Resolved]
  - Arthralgia [Not Recovered/Not Resolved]
